FAERS Safety Report 11288329 (Version 1)
Quarter: 2015Q3

REPORT INFORMATION
  Report Type: Spontaneous
  Country: US (occurrence: US)
  Receive Date: 20150721
  Receipt Date: 20150721
  Transmission Date: 20151125
  Serious: No
  Sender: FDA-Public Use
  Company Number: US-UNITED THERAPEUTICS-UNT-2015-002720

PATIENT
  Age: 58 Year
  Sex: Female
  Weight: 72.56 kg

DRUGS (1)
  1. REMODULIN [Suspect]
     Active Substance: TREPROSTINIL
     Indication: PULMONARY HYPERTENSION
     Dosage: 0.045 ?G/KG/MIN, CONTINUING
     Route: 041
     Dates: start: 20131029

REACTIONS (6)
  - Vomiting [Recovered/Resolved]
  - Device issue [Unknown]
  - Dizziness [Recovered/Resolved]
  - Malaise [Recovering/Resolving]
  - Drug dose omission [Unknown]
  - Lethargy [Recovered/Resolved]

NARRATIVE: CASE EVENT DATE: 201503
